FAERS Safety Report 8768481 (Version 2)
Quarter: 2012Q4

REPORT INFORMATION
  Report Type: 
  Country: IT (occurrence: IT)
  Receive Date: 20120905
  Receipt Date: 20120923
  Transmission Date: 20130627
  Serious: Yes (Disabling)
  Sender: FDA-Public Use
  Company Number: IT-009507513-1209ITA000394

PATIENT

DRUGS (3)
  1. FOSAMAX [Suspect]
     Indication: OSTEOPOROSIS
     Dosage: 70 mg, qw
     Route: 048
     Dates: start: 20050101, end: 20120616
  2. ESOPRAL [Concomitant]
     Dosage: 20 mg, qd
     Route: 048
     Dates: start: 20050101
  3. MEDROL [Concomitant]
     Dosage: 8 mg, qd
     Route: 048
     Dates: start: 20050101

REACTIONS (1)
  - Femur fracture [Recovered/Resolved with Sequelae]
